FAERS Safety Report 15476909 (Version 3)
Quarter: 2020Q4

REPORT INFORMATION
  Report Type: Other
  Country: GB (occurrence: GB)
  Receive Date: 20181009
  Receipt Date: 20201230
  Transmission Date: 20210113
  Serious: Yes (Hospitalization)
  Sender: FDA-Public Use
  Company Number: GB-ROCHE-2194495

PATIENT
  Sex: Female

DRUGS (10)
  1. GABAPENTIN. [Concomitant]
     Active Substance: GABAPENTIN
  2. ACICLOVIR [Concomitant]
     Active Substance: ACYCLOVIR
  3. CELECOXIB. [Concomitant]
     Active Substance: CELECOXIB
  4. MTX HEXAL [Concomitant]
     Active Substance: METHOTREXATE SODIUM
  5. VENLAFAXINE [Concomitant]
     Active Substance: VENLAFAXINE HYDROCHLORIDE
  6. LANSOPRAZOLE. [Concomitant]
     Active Substance: LANSOPRAZOLE
  7. FOLIC ACID. [Concomitant]
     Active Substance: FOLIC ACID
  8. HYDROXYCHLOROQUINE [Concomitant]
     Active Substance: HYDROXYCHLOROQUINE
  9. ROACTEMRA [Suspect]
     Active Substance: TOCILIZUMAB
     Indication: RHEUMATOID ARTHRITIS
     Route: 058
     Dates: start: 20180110
  10. ROACTEMRA [Suspect]
     Active Substance: TOCILIZUMAB
     Route: 058
     Dates: start: 20180116

REACTIONS (7)
  - Renal pain [Unknown]
  - Pain [Unknown]
  - Nasopharyngitis [Unknown]
  - Hepatic function abnormal [Unknown]
  - Herpes zoster [Unknown]
  - Arthralgia [Unknown]
  - Rheumatoid arthritis [Unknown]
